FAERS Safety Report 14834248 (Version 1)
Quarter: 2018Q2

REPORT INFORMATION
  Report Type: Spontaneous
  Country: US (occurrence: US)
  Receive Date: 20180501
  Receipt Date: 20180501
  Transmission Date: 20180711
  Serious: Yes (Other)
  Sender: FDA-Public Use
  Company Number: US-ALLERGAN-1716421US

PATIENT
  Age: 31 Year
  Sex: Female

DRUGS (1)
  1. TAYTULLA [Suspect]
     Active Substance: ETHINYL ESTRADIOL\NORETHINDRONE ACETATE
     Indication: OVARIAN CYST
     Dosage: 1 DF, QD
     Route: 048
     Dates: start: 201701, end: 201704

REACTIONS (10)
  - Mood swings [Recovered/Resolved]
  - Somnolence [Recovering/Resolving]
  - Ovarian cyst [Recovering/Resolving]
  - Off label use [Unknown]
  - Breast swelling [Recovering/Resolving]
  - Suicidal ideation [Recovered/Resolved]
  - Nausea [Recovering/Resolving]
  - Headache [Recovering/Resolving]
  - Adnexa uteri pain [Recovering/Resolving]
  - Crying [Recovered/Resolved]

NARRATIVE: CASE EVENT DATE: 201701
